FAERS Safety Report 9441002 (Version 1)
Quarter: 2013Q3

REPORT INFORMATION
  Report Type: Spontaneous
  Country: US (occurrence: None)
  Receive Date: 20130801
  Receipt Date: 20130801
  Transmission Date: 20140515
  Serious: Yes (Other)
  Sender: FDA-Public Use
  Company Number: 2013TP000437

PATIENT
  Sex: Female

DRUGS (1)
  1. LIDODERM (5 PCT) [Suspect]
     Indication: PROCEDURAL PAIN
     Route: 061
     Dates: start: 2005

REACTIONS (2)
  - Fall [None]
  - Injury [None]
